FAERS Safety Report 7920560-3 (Version None)
Quarter: 2011Q4

REPORT INFORMATION
  Report Type: 
  Country: None (occurrence: None)
  Receive Date: 20111117
  Receipt Date: 20110811
  Transmission Date: 20120403
  Serious: No
  Sender: FDA-Public Use
  Company Number: US-BAYER-2011-074915

PATIENT
  Age: 51 Year
  Sex: Male
  Weight: 106 kg

DRUGS (2)
  1. ALEVE (CAPLET) [Suspect]
     Indication: BACK PAIN
     Dosage: 1 DF, ONCE
     Route: 048
     Dates: start: 20110811, end: 20110811
  2. ANTIHYPERTENSIVES [Concomitant]

REACTIONS (1)
  - FOREIGN BODY [None]
